FAERS Safety Report 16201062 (Version 1)
Quarter: 2019Q2

REPORT INFORMATION
  Report Type: Spontaneous
  Country: US (occurrence: US)
  Receive Date: 20190416
  Receipt Date: 20190416
  Transmission Date: 20190711
  Serious: No
  Sender: FDA-Public Use
  Company Number: US-BION-007161

PATIENT
  Age: 79 Year
  Sex: Female
  Weight: 109 kg

DRUGS (3)
  1. CURCUMA LONGA [Concomitant]
     Active Substance: HERBALS\TURMERIC
  2. GLUCOSAMINE [Concomitant]
     Active Substance: GLUCOSAMINE
  3. NAPROXEN SODIUM. [Suspect]
     Active Substance: NAPROXEN SODIUM
     Indication: PAIN
     Route: 048

REACTIONS (1)
  - Drug ineffective [Not Recovered/Not Resolved]
